FAERS Safety Report 9959356 (Version 1)
Quarter: 2014Q1

REPORT INFORMATION
  Report Type: Spontaneous
  Country: US (occurrence: None)
  Receive Date: 20140228
  Receipt Date: 20140228
  Transmission Date: 20141002
  Serious: No
  Sender: FDA-Public Use
  Company Number: None

PATIENT
  Age: 54 Year
  Sex: Male

DRUGS (2)
  1. NEXIUM [Suspect]
     Indication: DYSPEPSIA
  2. NEXIUM [Suspect]
     Indication: REFLUX GASTRITIS

REACTIONS (2)
  - Drug ineffective [None]
  - Product quality issue [None]
